FAERS Safety Report 4287691-3 (Version None)
Quarter: 2004Q1

REPORT INFORMATION
  Report Type: 
  Country: None (occurrence: None)
  Receive Date: 20040209
  Receipt Date: 20030829
  Transmission Date: 20041129
  Serious: No
  Sender: FDA-Public Use
  Company Number: US-GLAXOSMITHKLINE-A0424116A

PATIENT
  Age: 61 Year
  Sex: Female

DRUGS (4)
  1. PAXIL [Suspect]
     Dosage: 12.5MG PER DAY
     Route: 048
     Dates: start: 20030801
  2. FOSAMAX [Concomitant]
  3. ATENOLOL [Concomitant]
  4. MONOPRIL [Concomitant]

REACTIONS (3)
  - CHILLS [None]
  - DIZZINESS [None]
  - NAUSEA [None]
